FAERS Safety Report 6078449-3 (Version None)
Quarter: 2009Q1

REPORT INFORMATION
  Report Type: 
  Country: None (occurrence: None)
  Receive Date: 20090212
  Receipt Date: 20090212
  Transmission Date: 20090719
  Serious: No
  Sender: FDA-Public Use
  Company Number: None

PATIENT
  Sex: Female
  Weight: 74.84 kg

DRUGS (19)
  1. CYCLOPHOSPHAMIDE [Suspect]
     Dosage: 1380
  2. DOXIL [Suspect]
     Dosage: 74 MG
  3. PREDNISONE TAB [Suspect]
     Dosage: 500 MG
  4. RITUXIMAB (MOAB C2B8 ANTI CD20, CHIMERIC) [Suspect]
     Dosage: 690 MG
  5. VINCRISTINE SULFATE [Suspect]
     Dosage: 2 MG
  6. AZITHROMYCIN [Concomitant]
  7. DECADRON [Concomitant]
  8. DIAMINO-DIPHENYL SULFONE [Concomitant]
  9. DOCUSATE SODIUM [Concomitant]
  10. EFAVIRENZE [Concomitant]
  11. EMTRICITABINE [Concomitant]
  12. ENALAPRIL [Concomitant]
  13. FLUCONAZOLE [Concomitant]
  14. LEVETIRACETAM [Concomitant]
  15. LEVOFLOXACIN [Concomitant]
  16. LORAZEPAM [Concomitant]
  17. ONDASETRON [Concomitant]
  18. PROCHLORPERAZINE [Concomitant]
  19. TENOFOVIR [Concomitant]

REACTIONS (1)
  - NEUTROPENIA [None]
